FAERS Safety Report 5169663-X (Version None)
Quarter: 2006Q4

REPORT INFORMATION
  Report Type: 
  Country: None (occurrence: None)
  Receive Date: 20061212
  Receipt Date: 20061206
  Transmission Date: 20070319
  Serious: Yes (Hospitalization, Other)
  Sender: FDA-Public Use
  Company Number: 2006UW27199

PATIENT
  Age: 26285 Day
  Sex: Female
  Weight: 59.3 kg

DRUGS (1)
  1. IRESSA [Suspect]
     Indication: NON-SMALL CELL LUNG CANCER STAGE I
     Route: 048
     Dates: start: 20061023, end: 20061119

REACTIONS (7)
  - CULTURE POSITIVE [None]
  - DRY SKIN [None]
  - FATIGUE [None]
  - LUNG CONSOLIDATION [None]
  - MORAXELLA INFECTION [None]
  - PNEUMONIA [None]
  - RESPIRATORY FAILURE [None]
